FAERS Safety Report 26099649 (Version 1)
Quarter: 2025Q4

REPORT INFORMATION
  Report Type: Spontaneous
  Country: US (occurrence: US)
  Receive Date: 20251128
  Receipt Date: 20251128
  Transmission Date: 20260117
  Serious: No
  Sender: GLAXOSMITHKLINE
  Company Number: US-GSK-US2025150919

PATIENT
  Age: 53 Year
  Sex: Female

DRUGS (1)
  1. VENTOLIN HFA [Suspect]
     Active Substance: ALBUTEROL SULFATE
     Indication: Asthma
     Dosage: 2 PUFF(S), QD

REACTIONS (7)
  - Blister [Unknown]
  - Hypersensitivity [Unknown]
  - Swollen tongue [Unknown]
  - Dizziness [Unknown]
  - Swelling face [Unknown]
  - Rash [Unknown]
  - Urticaria [Unknown]
